FAERS Safety Report 19677060 (Version 1)
Quarter: 2021Q3

REPORT INFORMATION
  Report Type: Spontaneous
  Country: DE (occurrence: DE)
  Receive Date: 20210810
  Receipt Date: 20210810
  Transmission Date: 20211014
  Serious: Yes (Hospitalization)
  Sender: FDA-Public Use
  Company Number: DE-LUPIN PHARMACEUTICALS INC.-2021-14127

PATIENT
  Sex: Female

DRUGS (4)
  1. GIVOSIRAN. [Concomitant]
     Active Substance: GIVOSIRAN
     Dosage: 2.5 MILLIGRAM, MONTHLY
     Route: 058
     Dates: end: 20200602
  2. CETIRIZINE [Suspect]
     Active Substance: CETIRIZINE HYDROCHLORIDE
     Indication: PREMEDICATION
     Dosage: 10 MILLIGRAM, QD
     Route: 065
  3. GIVOSIRAN. [Concomitant]
     Active Substance: GIVOSIRAN
     Indication: PORPHYRIA ACUTE
     Dosage: 1.25 MILLIGRAM, MONTHLY
     Route: 058
  4. CETIRIZINE [Suspect]
     Active Substance: CETIRIZINE HYDROCHLORIDE
     Indication: ANTIALLERGIC THERAPY

REACTIONS (1)
  - Drug ineffective [Unknown]
